FAERS Safety Report 6022307-7 (Version None)
Quarter: 2008Q4

REPORT INFORMATION
  Report Type: 
  Country: None (occurrence: None)
  Receive Date: 20081223
  Receipt Date: 20081209
  Transmission Date: 20090506
  Serious: Yes (Hospitalization, Other)
  Sender: FDA-Public Use
  Company Number: 2008003214

PATIENT
  Age: 74 Year
  Sex: Male

DRUGS (10)
  1. ERLOTINIB (ERLOTINIB) (TABLET) (ERLOTINIB) [Suspect]
     Indication: NON-SMALL CELL LUNG CANCER
     Dosage: (150 MG, QD) ,ORAL
     Route: 048
     Dates: start: 20081016
  2. CISPLATIN [Suspect]
  3. GEMCITABINE [Suspect]
  4. GLYBURIDE [Concomitant]
  5. METFORMIN HCL [Concomitant]
  6. ASPIRIN [Concomitant]
  7. PREVACID [Concomitant]
  8. MAXERAN (METOCLOPRAMIDE HYDROCHLORIDE) [Concomitant]
  9. MAVIK [Concomitant]
  10. LIPITOR [Concomitant]

REACTIONS (1)
  - ACUTE MYOCARDIAL INFARCTION [None]
